FAERS Safety Report 9207168 (Version 2)
Quarter: 2013Q2

REPORT INFORMATION
  Report Type: Spontaneous
  Country: US (occurrence: None)
  Receive Date: 20120731
  Receipt Date: 20121113
  Transmission Date: 20140414
  Serious: Yes (Other)
  Sender: FDA-Public Use
  Company Number: PHEH2012US012371

PATIENT
  Sex: Female

DRUGS (1)
  1. ARCAPTA [Suspect]

REACTIONS (2)
  - Lung disorder [None]
  - Product quality issue [None]
